FAERS Safety Report 23748607 (Version 2)
Quarter: 2024Q2

REPORT INFORMATION
  Report Type: Spontaneous
  Country: FR (occurrence: FR)
  Receive Date: 20240416
  Receipt Date: 20240520
  Transmission Date: 20240715
  Serious: Yes (Hospitalization, Other)
  Sender: FDA-Public Use
  Company Number: None

PATIENT
  Age: 46 Year
  Sex: Female
  Weight: 100 kg

DRUGS (3)
  1. KEYTRUDA [Suspect]
     Active Substance: PEMBROLIZUMAB
     Indication: Breast cancer
     Dosage: UNK, Q3W
     Route: 042
     Dates: start: 20231124, end: 20231124
  2. CARBOPLATIN [Concomitant]
     Active Substance: CARBOPLATIN
     Dosage: UNK
  3. GEMCITABINE [Concomitant]
     Active Substance: GEMCITABINE
     Dosage: UNK

REACTIONS (3)
  - Type 1 diabetes mellitus [Recovered/Resolved]
  - Anti-GAD antibody positive [Recovered/Resolved]
  - Hyperthyroidism [Recovered/Resolved]

NARRATIVE: CASE EVENT DATE: 20231215
